FAERS Safety Report 13493378 (Version 1)
Quarter: 2017Q2

REPORT INFORMATION
  Report Type: Report from Study
  Country: US (occurrence: US)
  Receive Date: 20170427
  Receipt Date: 20170427
  Transmission Date: 20170830
  Serious: Yes (Hospitalization, Other)
  Sender: FDA-Public Use
  Company Number: US-ACTELION-A-NJ2017-150505

PATIENT
  Age: 80 Year
  Sex: Female
  Weight: 58.96 kg

DRUGS (4)
  1. LETAIRIS [Concomitant]
     Active Substance: AMBRISENTAN
  2. UPTRAVI [Suspect]
     Active Substance: SELEXIPAG
     Dosage: 1200 MCG, BID
     Route: 048
  3. VELETRI [Suspect]
     Active Substance: EPOPROSTENOL
     Indication: PULMONARY ARTERIAL HYPERTENSION
     Dosage: 28.1 NG/KG, PER MIN
     Route: 042
  4. UPTRAVI [Suspect]
     Active Substance: SELEXIPAG
     Indication: PULMONARY ARTERIAL HYPERTENSION
     Dosage: 1000 MCG, BID
     Route: 048

REACTIONS (10)
  - Joint injury [Unknown]
  - Diarrhoea [Unknown]
  - Upper limb fracture [Unknown]
  - Respiratory failure [Unknown]
  - Hypotension [Unknown]
  - Arthralgia [Unknown]
  - Balance disorder [Unknown]
  - Drug intolerance [Unknown]
  - Influenza like illness [Unknown]
  - Fall [Unknown]

NARRATIVE: CASE EVENT DATE: 20170316
